FAERS Safety Report 25136378 (Version 1)
Quarter: 2025Q1

REPORT INFORMATION
  Report Type: Spontaneous
  Country: US (occurrence: US)
  Receive Date: 20250328
  Receipt Date: 20250328
  Transmission Date: 20250409
  Serious: No
  Sender: VERTEX
  Company Number: US-VERTEX PHARMACEUTICALS-2025-004380

PATIENT
  Sex: Female

DRUGS (1)
  1. JOURNAVX [Suspect]
     Active Substance: SUZETRIGINE
     Indication: Product used for unknown indication
     Route: 048
     Dates: start: 202503

REACTIONS (1)
  - Genital rash [Not Recovered/Not Resolved]

NARRATIVE: CASE EVENT DATE: 20250301
